FAERS Safety Report 16174074 (Version 2)
Quarter: 2019Q4

REPORT INFORMATION
  Report Type: Spontaneous
  Country: US (occurrence: US)
  Receive Date: 20190409
  Receipt Date: 20191230
  Transmission Date: 20200122
  Serious: Yes (Other)
  Sender: FDA-Public Use
  Company Number: US-COOPERSURGICAL, INC.-US-2019CPS000964

PATIENT

DRUGS (1)
  1. PARAGARD T 380A [Suspect]
     Active Substance: COPPER
     Indication: CONTRACEPTION
     Dosage: UNK
     Route: 015
     Dates: start: 2017, end: 20190211

REACTIONS (18)
  - Insomnia [Unknown]
  - Depression [Unknown]
  - Device breakage [Unknown]
  - Libido decreased [Unknown]
  - Complication of device removal [Unknown]
  - Procedural pain [Recovered/Resolved]
  - Emotional disorder [Unknown]
  - Vocal cord disorder [Not Recovered/Not Resolved]
  - Fatigue [Unknown]
  - Bruxism [Unknown]
  - Nightmare [Unknown]
  - Foreign body in urogenital tract [Unknown]
  - Crying [Unknown]
  - Anxiety [Recovered/Resolved]
  - Metrorrhagia [Recovered/Resolved]
  - Stress [Unknown]
  - Toothache [Unknown]
  - Pain [Unknown]

NARRATIVE: CASE EVENT DATE: 201902
